FAERS Safety Report 19284816 (Version 2)
Quarter: 2021Q2

REPORT INFORMATION
  Report Type: Report from Study
  Country: US (occurrence: US)
  Receive Date: 20210521
  Receipt Date: 20210629
  Transmission Date: 20210717
  Serious: Yes (Hospitalization)
  Sender: FDA-Public Use
  Company Number: US-JNJFOC-20210527791

PATIENT
  Age: 42 Year
  Sex: Male
  Weight: 73.68 kg

DRUGS (7)
  1. GABAPENTIN. [Concomitant]
     Active Substance: GABAPENTIN
     Indication: MAJOR DEPRESSION
     Dates: start: 202001
  2. SPRAVATO [Suspect]
     Active Substance: ESKETAMINE
     Dosage: 6 TOTAL DOSES
     Dates: start: 20210308, end: 20210505
  3. WELLBUTRIN [Concomitant]
     Active Substance: BUPROPION HYDROCHLORIDE
     Indication: MAJOR DEPRESSION
     Dates: start: 202001
  4. PROPRANOLOL [Concomitant]
     Active Substance: PROPRANOLOL HYDROCHLORIDE
     Indication: GENERALISED ANXIETY DISORDER
     Dates: start: 201807
  5. SPRAVATO [Suspect]
     Active Substance: ESKETAMINE
     Indication: DEPRESSION
     Dosage: 6 TOTAL DOSES
     Dates: start: 20210104, end: 20210304
  6. METFORMIN [Concomitant]
     Active Substance: METFORMIN HYDROCHLORIDE
     Indication: DIABETES MELLITUS
     Dates: start: 201807
  7. SPRAVATO [Suspect]
     Active Substance: ESKETAMINE
     Dates: start: 20210512, end: 20210512

REACTIONS (5)
  - Chest pain [Unknown]
  - Dyspnoea [Unknown]
  - Dizziness [Unknown]
  - Headache [Unknown]
  - Vision blurred [Unknown]

NARRATIVE: CASE EVENT DATE: 20210512
